FAERS Safety Report 7634253-3 (Version None)
Quarter: 2011Q3

REPORT INFORMATION
  Report Type: 
  Country: None (occurrence: None)
  Receive Date: 20110725
  Receipt Date: 20110715
  Transmission Date: 20111222
  Serious: Yes (Hospitalization)
  Sender: FDA-Public Use
  Company Number: US-ABBOTT-11P-163-0839920-00

PATIENT
  Sex: Male

DRUGS (5)
  1. TOPROL-XL [Concomitant]
     Indication: CARDIAC DISORDER
     Route: 048
  2. HUMIRA [Suspect]
     Route: 058
     Dates: start: 20110715
  3. NORVASC [Concomitant]
     Indication: CARDIAC DISORDER
     Route: 048
  4. APRISO [Concomitant]
     Indication: GASTROINTESTINAL DISORDER
     Route: 048
  5. HUMIRA [Suspect]
     Indication: CROHN'S DISEASE
     Route: 058
     Dates: start: 20101112, end: 20110708

REACTIONS (4)
  - CROHN'S DISEASE [None]
  - LOCALISED INFECTION [None]
  - FISTULA [None]
  - DRUG INEFFECTIVE [None]
